FAERS Safety Report 13708593 (Version 4)
Quarter: 2018Q2

REPORT INFORMATION
  Report Type: Spontaneous
  Country: JP (occurrence: JP)
  Receive Date: 20170630
  Receipt Date: 20180411
  Transmission Date: 20180711
  Serious: Yes (Other)
  Sender: FDA-Public Use
  Company Number: JP-BAUSCH-BL-2017-020067

PATIENT
  Age: 64 Year
  Sex: Male

DRUGS (2)
  1. VISUDYNE [Suspect]
     Active Substance: VERTEPORFIN
     Indication: POLYPOIDAL CHOROIDAL VASCULOPATHY
     Route: 042
     Dates: start: 20160115
  2. AFLIBERCEPT [Concomitant]
     Active Substance: AFLIBERCEPT
     Indication: PRODUCT USED FOR UNKNOWN INDICATION
     Dosage: INTRAVITREAL ROUTE
     Route: 050
     Dates: start: 20160114

REACTIONS (2)
  - Polypoidal choroidal vasculopathy [Unknown]
  - Disease progression [Unknown]
